FAERS Safety Report 11099884 (Version 1)
Quarter: 2015Q2

REPORT INFORMATION
  Report Type: Spontaneous
  Country: EG (occurrence: EG)
  Receive Date: 20150508
  Receipt Date: 20150508
  Transmission Date: 20150821
  Serious: Yes (Death)
  Sender: FDA-Public Use
  Company Number: EG-NOVOPROD-448102

PATIENT
  Age: 71 Year
  Sex: Female

DRUGS (4)
  1. NITROMACK [Concomitant]
     Dosage: BID
     Route: 048
  2. LANOXIN [Concomitant]
     Active Substance: DIGOXIN
     Dosage: SINGLE
     Route: 048
  3. MIXTARD 30 HM PENFILL [Suspect]
     Active Substance: INSULIN HUMAN
     Indication: DIABETES MELLITUS
     Dosage: 80 U, QD (50 U BEFORE BREAKFAST AND 30 U BEFORE DINNER)
     Route: 058
     Dates: start: 2000
  4. NORVASC [Concomitant]
     Active Substance: AMLODIPINE BESYLATE
     Dosage: SINGLE
     Route: 048

REACTIONS (2)
  - Thrombosis [Fatal]
  - Cerebrovascular accident [Fatal]
